FAERS Safety Report 7944540-7 (Version None)
Quarter: 2011Q4

REPORT INFORMATION
  Report Type: 
  Country: None (occurrence: None)
  Receive Date: 20111114
  Receipt Date: 20110804
  Transmission Date: 20120403
  Serious: No
  Sender: FDA-Public Use
  Company Number: 1000022660

PATIENT
  Age: 60 Year
  Sex: Female

DRUGS (11)
  1. DIURETIC PILL NOS (DIURETIC PILL NOS) (DIURETIC PILL NOS) [Concomitant]
  2. HYPERTENSION MEDICATION NOS (HYPERTENSION MEDICATION NOS) (HYPERTENSIO [Concomitant]
  3. SAVELLA [Suspect]
     Indication: FIBROMYALGIA
     Dosage: 50 MG BID (50 MG, 2 IN 1 D), ORAL
     Route: 048
     Dates: start: 20110731, end: 20110802
  4. SINGULAIR (MONTELUKAST SODIUM) (MONTELUKAST SODIUM) [Concomitant]
  5. SAVELLA [Suspect]
     Indication: FIBROMYALGIA
     Dosage: 50 MG (50 MG, 1 IN 1 D), ORAL
     Route: 048
     Dates: start: 20110803, end: 20110803
  6. OMEGA-3(OMEGA-3) (OMEGA-3) [Concomitant]
  7. ASPIRIN [Concomitant]
  8. HYPOTHYROID MEDICATION NOS (HYPOTHYROID MEDICATION NOS) (HYPOTHYROID M [Concomitant]
  9. SAVELLA [Suspect]
     Indication: FIBROMYALGIA
     Dosage: 12.5 MG (12.5 MG, 1 IN 1 D), ORAL
     Route: 048
     Dates: start: 20110724, end: 20110724
  10. ZYRTEC [Concomitant]
  11. VITAMIN D (VITAMIN D) (VITAMIN D) [Concomitant]

REACTIONS (3)
  - HEADACHE [None]
  - GASTROINTESTINAL DISORDER [None]
  - FEELING ABNORMAL [None]
